FAERS Safety Report 11513341 (Version 1)
Quarter: 2015Q3

REPORT INFORMATION
  Report Type: Spontaneous
  Country: US (occurrence: None)
  Receive Date: 20150915
  Receipt Date: 20150915
  Transmission Date: 20151125
  Serious: Yes (Disabling)
  Sender: FDA-Public Use
  Company Number: None

PATIENT
  Age: 56 Year
  Sex: Male
  Weight: 60.78 kg

DRUGS (2)
  1. LEVEMIR [Suspect]
     Active Substance: INSULIN DETEMIR
     Indication: DIABETES MELLITUS
     Dosage: 8 UNITS TWICE DAILY INTO THE MUSCLE
     Route: 030
     Dates: start: 20141006, end: 20150814
  2. DAILY MULTIVITAMIN [Concomitant]
     Active Substance: VITAMINS

REACTIONS (3)
  - Dysgraphia [None]
  - Mental impairment [None]
  - Speech disorder [None]

NARRATIVE: CASE EVENT DATE: 20141006
